FAERS Safety Report 9008363 (Version 2)
Quarter: 2013Q1

REPORT INFORMATION
  Report Type: Spontaneous
  Country: US (occurrence: US)
  Receive Date: 20130111
  Receipt Date: 20130131
  Transmission Date: 20140127
  Serious: No
  Sender: FDA-Public Use
  Company Number: US-PFIZER INC-2013013227

PATIENT
  Age: 55 Year
  Sex: Female
  Weight: 89.34 kg

DRUGS (5)
  1. RELPAX [Suspect]
     Indication: MIGRAINE
     Dosage: 40 MG, 1X/DAY
     Route: 048
     Dates: start: 20130110
  2. PROZAC [Concomitant]
     Indication: ASTHMA
     Dosage: UNK
  3. VENTOLIN [Concomitant]
     Indication: ASTHMA
     Dosage: UNK
  4. ASMANEX [Concomitant]
     Indication: ASTHMA
     Dosage: UNK
  5. CLARITIN [Concomitant]
     Indication: ASTHMA
     Dosage: UNK

REACTIONS (3)
  - Chest discomfort [Unknown]
  - Fatigue [Unknown]
  - Sensation of heaviness [Unknown]
